FAERS Safety Report 22069506 (Version 2)
Quarter: 2024Q1

REPORT INFORMATION
  Report Type: Spontaneous
  Country: US (occurrence: US)
  Receive Date: 20230307
  Receipt Date: 20240226
  Transmission Date: 20240410
  Serious: No
  Sender: FDA-Public Use
  Company Number: US-AMNEAL PHARMACEUTICALS-2022-AMRX-03848

PATIENT
  Age: 88 Year
  Sex: Male
  Weight: 99.773 kg

DRUGS (1)
  1. RYTARY [Suspect]
     Active Substance: CARBIDOPA\LEVODOPA
     Indication: Product used for unknown indication
     Dosage: 3 CAPSULES, QID
     Route: 048

REACTIONS (7)
  - Sleep disorder [Unknown]
  - Illness [Unknown]
  - Balance disorder [Unknown]
  - Abnormal dreams [Unknown]
  - Anxiety [Unknown]
  - Tremor [Recovered/Resolved]
  - Dizziness [Recovered/Resolved]

NARRATIVE: CASE EVENT DATE: 20221206
